FAERS Safety Report 14816144 (Version 4)
Quarter: 2018Q2

REPORT INFORMATION
  Report Type: Spontaneous
  Country: RS (occurrence: RS)
  Receive Date: 20180426
  Receipt Date: 20180525
  Transmission Date: 20180711
  Serious: Yes (Hospitalization)
  Sender: FDA-Public Use
  Company Number: PHHY2018RS071941

PATIENT
  Age: 58 Year
  Sex: Female

DRUGS (20)
  1. CLOMIPRAMINE [Suspect]
     Active Substance: CLOMIPRAMINE
     Dosage: 200 MG, QD
     Route: 065
  2. CLOMIPRAMINE [Suspect]
     Active Substance: CLOMIPRAMINE
     Dosage: 150 MG, QD
     Route: 065
  3. CLONAZEPAM. [Concomitant]
     Active Substance: CLONAZEPAM
     Indication: PRODUCT USED FOR UNKNOWN INDICATION
     Dosage: 1/4+0+1/2
     Route: 065
  4. LUNATA [Concomitant]
     Active Substance: ZOLPIDEM TARTRATE
     Indication: PRODUCT USED FOR UNKNOWN INDICATION
     Dosage: 1 DF, QD (0+0+1)
     Route: 065
  5. DIAZEPAM. [Concomitant]
     Active Substance: DIAZEPAM
     Indication: PRODUCT USED FOR UNKNOWN INDICATION
     Dosage: UNK UNK, PRN
     Route: 065
  6. CLOZAPINE. [Suspect]
     Active Substance: CLOZAPINE
     Indication: PSYCHOTIC SYMPTOM
     Dosage: 1/4+1/4+1/2 (CONC: 100 MG)
     Route: 065
  7. CLOZAPINE. [Suspect]
     Active Substance: CLOZAPINE
     Dosage: 1+1+0 (CONC: 2 MG) ONLY EVENING DOSE)
     Route: 065
  8. EGLONYL [Concomitant]
     Indication: ANTIDEPRESSANT THERAPY
     Dosage: 50 MG, BID
     Route: 065
  9. LORAZEPAM. [Concomitant]
     Active Substance: LORAZEPAM
     Indication: PRODUCT USED FOR UNKNOWN INDICATION
     Dosage: 1/2+1/2+1
     Route: 065
  10. CLOMIPRAMINE [Suspect]
     Active Substance: CLOMIPRAMINE
     Indication: PRODUCT USED FOR UNKNOWN INDICATION
     Dosage: 50 MG, QD
     Route: 065
  11. REMIRTA [Concomitant]
     Active Substance: MIRTAZAPINE
     Indication: PRODUCT USED FOR UNKNOWN INDICATION
     Dosage: 1 DF, QD (0+0+1)
     Route: 065
  12. VELAHIBIN [Concomitant]
     Indication: PRODUCT USED FOR UNKNOWN INDICATION
     Dosage: 3+2+0
     Route: 065
  13. CLOMIPRAMINE [Suspect]
     Active Substance: CLOMIPRAMINE
     Dosage: 150 MG, QD
     Route: 048
  14. HALDOL [Concomitant]
     Active Substance: HALOPERIDOL
     Indication: PRODUCT USED FOR UNKNOWN INDICATION
     Dosage: 1+0+1/2
     Route: 065
  15. EUTIROX [Concomitant]
     Active Substance: LEVOTHYROXINE SODIUM
     Indication: PRODUCT USED FOR UNKNOWN INDICATION
     Dosage: 0.5 DF, QD
     Route: 065
  16. KARBAPIN [Concomitant]
     Indication: PRODUCT USED FOR UNKNOWN INDICATION
     Dosage: 1+1/2+1
     Route: 065
  17. ANAFRANIL [Suspect]
     Active Substance: CLOMIPRAMINE HYDROCHLORIDE
     Indication: PRODUCT USED FOR UNKNOWN INDICATION
     Dosage: 3 DF, BID (3+3+0)
     Route: 065
  18. IMIPRAMINE [Concomitant]
     Active Substance: IMIPRAMINE
     Indication: ANTIDEPRESSANT THERAPY
     Route: 065
  19. MENDILEX [Concomitant]
     Active Substance: BIPERIDEN HYDROCHLORIDE
     Indication: PRODUCT USED FOR UNKNOWN INDICATION
     Dosage: 1 DF, QD (1+0+0)
     Route: 065
  20. ONZAPIN [Concomitant]
     Indication: PRODUCT USED FOR UNKNOWN INDICATION
     Dosage: 1/4+0+1
     Route: 065

REACTIONS (19)
  - Tension [Unknown]
  - Disturbance in social behaviour [Unknown]
  - Nightmare [Unknown]
  - Fear of death [Unknown]
  - Somnolence [Unknown]
  - Eating disorder [Unknown]
  - Vision blurred [Unknown]
  - Malaise [Unknown]
  - Muscle atrophy [Unknown]
  - Gait disturbance [Unknown]
  - Dry mouth [Unknown]
  - Thinking abnormal [Unknown]
  - Anaemia [Unknown]
  - Weight decreased [Unknown]
  - Tremor [Unknown]
  - Psychiatric decompensation [Recovered/Resolved]
  - Insomnia [Unknown]
  - Helplessness [Unknown]
  - Fear of disease [Unknown]

NARRATIVE: CASE EVENT DATE: 201512
